FAERS Safety Report 6723729-9 (Version None)
Quarter: 2010Q2

REPORT INFORMATION
  Report Type: 
  Country: None (occurrence: None)
  Receive Date: 20100511
  Receipt Date: 20100430
  Transmission Date: 20101027
  Serious: No
  Sender: FDA-Public Use
  Company Number: 2010-00389

PATIENT
  Age: 56 Year
  Sex: Male
  Weight: 86.1834 kg

DRUGS (5)
  1. ZICAM COLD REMEDY NASAL GEL [Suspect]
     Dosage: SPORADIC - SEVERAL YEARS
     Dates: end: 20090101
  2. TOPROL-XL [Concomitant]
  3. MULTI-VITAMIN [Concomitant]
  4. SLOW NIACIN [Concomitant]
  5. ASPIRIN [Concomitant]

REACTIONS (1)
  - ANOSMIA [None]
